FAERS Safety Report 21399689 (Version 1)
Quarter: 2022Q4

REPORT INFORMATION
  Report Type: Other
  Country: US (occurrence: US)
  Receive Date: 20221001
  Receipt Date: 20221001
  Transmission Date: 20230113
  Serious: Yes (Other)
  Sender: FDA-Public Use
  Company Number: US-DECIPHERA PHARMACEUTICALS LLC-2022US000803

PATIENT
  Sex: Female

DRUGS (1)
  1. QINLOCK [Suspect]
     Active Substance: RIPRETINIB
     Indication: Gastrointestinal stromal tumour
     Dosage: 150 MILLIGRAM, QD
     Route: 048
     Dates: start: 20220611

REACTIONS (6)
  - Cellulitis [Unknown]
  - Erythema [Unknown]
  - Skin atrophy [Unknown]
  - Hyperaesthesia [Unknown]
  - Alopecia [Unknown]
  - Nausea [Not Recovered/Not Resolved]
